FAERS Safety Report 15739328 (Version 1)
Quarter: 2018Q4

REPORT INFORMATION
  Report Type: Spontaneous
  Country: IT (occurrence: IT)
  Receive Date: 20181219
  Receipt Date: 20181219
  Transmission Date: 20190205
  Serious: No
  Sender: FDA-Public Use
  Company Number: IT-B. BRAUN MEDICAL INC.-2060363

PATIENT
  Age: 21 Year
  Sex: Female

DRUGS (2)
  1. METRONIDAZOLE INJECTION USP (5 MG/ML) IN PAB? PLASTIC CONTAINER (NDA 0 [Suspect]
     Active Substance: METRONIDAZOLE
     Route: 042
     Dates: start: 20180716, end: 20180717
  2. AMOXICILLIN. [Suspect]
     Active Substance: AMOXICILLIN
     Route: 042
     Dates: start: 20180716, end: 20180717

REACTIONS (3)
  - Cough [Recovered/Resolved]
  - Throat tightness [Recovered/Resolved]
  - Chest discomfort [Recovered/Resolved]

NARRATIVE: CASE EVENT DATE: 20180717
